FAERS Safety Report 5940576-6 (Version None)
Quarter: 2008Q4

REPORT INFORMATION
  Report Type: 
  Country: None (occurrence: None)
  Receive Date: 20081104
  Receipt Date: 20081023
  Transmission Date: 20090506
  Serious: Yes (Hospitalization)
  Sender: FDA-Public Use
  Company Number: JP-ROCHE-594381

PATIENT
  Age: 66 Year
  Sex: Male

DRUGS (3)
  1. PEGASYS [Suspect]
     Route: 058
  2. PEGASYS [Suspect]
     Route: 058
     Dates: start: 20080723, end: 20081022
  3. COPEGUS [Suspect]
     Route: 048
     Dates: start: 20080723, end: 20081022

REACTIONS (2)
  - PAROTID GLAND ENLARGEMENT [None]
  - PAROTID GLAND INFLAMMATION [None]
